FAERS Safety Report 7335552-5 (Version None)
Quarter: 2011Q1

REPORT INFORMATION
  Report Type: 
  Country: None (occurrence: None)
  Receive Date: 20110307
  Receipt Date: 20110303
  Transmission Date: 20110831
  Serious: Yes (Other)
  Sender: FDA-Public Use
  Company Number: US-PFIZER INC-2011047732

PATIENT
  Sex: Female
  Weight: 81.633 kg

DRUGS (5)
  1. KLONOPIN [Concomitant]
     Dosage: UNK, 2X/DAY
  2. LITHIUM [Concomitant]
     Dosage: 300 MG, 2X/DAY
  3. RISPERIDONE [Concomitant]
     Dosage: 3 MG, UNK
  4. TRILEPTAL [Concomitant]
     Dosage: 600 MG, 4X/DAY
  5. CHANTIX [Suspect]
     Indication: SMOKING CESSATION THERAPY
     Dosage: 0.5 MG, 2X/DAY
     Route: 048
     Dates: start: 20110101, end: 20110101

REACTIONS (1)
  - EMOTIONAL DISTRESS [None]
